FAERS Safety Report 7954560-4 (Version None)
Quarter: 2011Q4

REPORT INFORMATION
  Report Type: 
  Country: None (occurrence: None)
  Receive Date: 20111202
  Receipt Date: 20111123
  Transmission Date: 20120403
  Serious: Yes (Other)
  Sender: FDA-Public Use
  Company Number: PHEH2011US010116

PATIENT
  Sex: Female

DRUGS (1)
  1. DIOVAN [Suspect]
     Dosage: 160 MG, QD
     Route: 048

REACTIONS (5)
  - DIABETES MELLITUS [None]
  - NEURALGIA [None]
  - RENAL IMPAIRMENT [None]
  - NEUROPATHY PERIPHERAL [None]
  - INTERVERTEBRAL DISC DEGENERATION [None]
